FAERS Safety Report 23830187 (Version 1)
Quarter: 2024Q2

REPORT INFORMATION
  Report Type: Spontaneous
  Country: US (occurrence: US)
  Receive Date: 20240508
  Receipt Date: 20240508
  Transmission Date: 20240715
  Serious: Yes (Other)
  Sender: FDA-Public Use
  Company Number: US-BEH-2024170489

PATIENT
  Age: 3 Year
  Sex: Male

DRUGS (14)
  1. IDELVION [Suspect]
     Active Substance: COAGULATION FACTOR IX RECOMBINANT HUMAN
     Indication: Factor IX deficiency
     Dosage: 760-912 EVERY 7 DAYS
     Route: 042
     Dates: start: 202204
  2. IDELVION [Suspect]
     Active Substance: COAGULATION FACTOR IX RECOMBINANT HUMAN
     Indication: Factor IX deficiency
     Dosage: 760-912 EVERY 7 DAYS
     Route: 042
     Dates: start: 202204
  3. IDELVION [Suspect]
     Active Substance: COAGULATION FACTOR IX RECOMBINANT HUMAN
     Indication: Haemarthrosis
     Dosage: 760-912 AS NEEDED FOR MINOR BLEEDING
     Route: 042
     Dates: start: 202204
  4. IDELVION [Suspect]
     Active Substance: COAGULATION FACTOR IX RECOMBINANT HUMAN
     Indication: Haemarthrosis
     Dosage: 760-912 AS NEEDED FOR MINOR BLEEDING
     Route: 042
     Dates: start: 202204
  5. IDELVION [Suspect]
     Active Substance: COAGULATION FACTOR IX RECOMBINANT HUMAN
     Indication: Joint injury
     Dosage: 1520-1824 AS NEEDED FOR MAJOR BLEEDING
     Route: 042
     Dates: start: 202204
  6. IDELVION [Suspect]
     Active Substance: COAGULATION FACTOR IX RECOMBINANT HUMAN
     Indication: Joint injury
     Dosage: 1520-1824 AS NEEDED FOR MAJOR BLEEDING
     Route: 042
     Dates: start: 202204
  7. IDELVION [Suspect]
     Active Substance: COAGULATION FACTOR IX RECOMBINANT HUMAN
     Dosage: 845-1014 EVERY 7 DAYS
     Route: 042
     Dates: start: 202204
  8. IDELVION [Suspect]
     Active Substance: COAGULATION FACTOR IX RECOMBINANT HUMAN
     Dosage: 845-1014 EVERY 7 DAYS
     Route: 042
     Dates: start: 202204
  9. IDELVION [Suspect]
     Active Substance: COAGULATION FACTOR IX RECOMBINANT HUMAN
     Dosage: 845-1014 AS NEEDED FOR MINOR BLEEDING
     Route: 042
     Dates: start: 202204
  10. IDELVION [Suspect]
     Active Substance: COAGULATION FACTOR IX RECOMBINANT HUMAN
     Dosage: 845-1014 AS NEEDED FOR MINOR BLEEDING
     Route: 042
     Dates: start: 202204
  11. IDELVION [Suspect]
     Active Substance: COAGULATION FACTOR IX RECOMBINANT HUMAN
     Dosage: 1690-2028 AS NEEDED FOR MAJOR BLEEDING
     Route: 042
     Dates: start: 202204
  12. IDELVION [Suspect]
     Active Substance: COAGULATION FACTOR IX RECOMBINANT HUMAN
     Dosage: 1690-2028 AS NEEDED FOR MAJOR BLEEDING
     Route: 042
     Dates: start: 202204
  13. IDELVION [Suspect]
     Active Substance: COAGULATION FACTOR IX RECOMBINANT HUMAN
     Dosage: 1 DF, PRN
     Route: 065
     Dates: start: 202404
  14. IDELVION [Suspect]
     Active Substance: COAGULATION FACTOR IX RECOMBINANT HUMAN
     Dosage: 1 DF, PRN
     Route: 065
     Dates: start: 202404

REACTIONS (2)
  - Haemarthrosis [Unknown]
  - Skin abrasion [Unknown]

NARRATIVE: CASE EVENT DATE: 20240412
